FAERS Safety Report 12175842 (Version 1)
Quarter: 2016Q1

REPORT INFORMATION
  Report Type: Spontaneous
  Country: US (occurrence: US)
  Receive Date: 20160314
  Receipt Date: 20160314
  Transmission Date: 20160526
  Serious: No
  Sender: FDA-Public Use
  Company Number: US-LPDUSPRD-20150371

PATIENT
  Age: 61 Year
  Sex: Female
  Weight: 79.38 kg

DRUGS (4)
  1. PROZAC [Concomitant]
     Active Substance: FLUOXETINE HYDROCHLORIDE
     Dosage: DOSE NOT PROVIDED
     Dates: start: 1985
  2. ESTRADIOL VALERATE INJECTION, USP (0870-05) [Suspect]
     Active Substance: ESTRADIOL VALERATE
     Dosage: 1 ML EVERY 4 TO 6 WEEKS
     Route: 030
     Dates: start: 201502, end: 20150514
  3. METOPROLOL. [Concomitant]
     Active Substance: METOPROLOL
     Dosage: DOSE NOT PROVIDED
     Dates: start: 2015
  4. REQIP [Concomitant]
     Dosage: DOSE NOT PROVIDED
     Dates: start: 201505

REACTIONS (1)
  - Drug ineffective [Unknown]

NARRATIVE: CASE EVENT DATE: 201502
